FAERS Safety Report 5674609-1 (Version None)
Quarter: 2008Q1

REPORT INFORMATION
  Report Type: 
  Country: None (occurrence: None)
  Receive Date: 20080320
  Receipt Date: 20080317
  Transmission Date: 20080703
  Serious: Yes (Other)
  Sender: FDA-Public Use
  Company Number: GB-WYE-G01259808

PATIENT
  Sex: Male

DRUGS (3)
  1. EFFEXOR [Suspect]
     Route: 048
     Dates: start: 20071001, end: 20071201
  2. EFFEXOR [Suspect]
     Route: 048
     Dates: start: 20071201
  3. INSULIN [Concomitant]
     Indication: DIABETES MELLITUS
     Dosage: UNKNOWN

REACTIONS (3)
  - CONDITION AGGRAVATED [None]
  - HYPERTENSION [None]
  - PROTEINURIA [None]
